FAERS Safety Report 7515352-3 (Version None)
Quarter: 2011Q2

REPORT INFORMATION
  Report Type: 
  Country: None (occurrence: None)
  Receive Date: 20110601
  Receipt Date: 20100601
  Transmission Date: 20111010
  Serious: Yes (Other)
  Sender: FDA-Public Use
  Company Number: US-PFIZER INC-2010055060

PATIENT
  Sex: Male
  Weight: 74.8 kg

DRUGS (2)
  1. TRAZODONE [Concomitant]
     Indication: DEPRESSION
     Dosage: UNK
  2. CHANTIX [Suspect]
     Indication: SMOKING CESSATION THERAPY
     Dosage: 0.5 MG, 1X/DAY
     Route: 048
     Dates: start: 20100329

REACTIONS (2)
  - SWOLLEN TONGUE [None]
  - HYPERSENSITIVITY [None]
